FAERS Safety Report 6025217-4 (Version None)
Quarter: 2008Q4

REPORT INFORMATION
  Report Type: 
  Country: None (occurrence: None)
  Receive Date: 20081224
  Receipt Date: 20081216
  Transmission Date: 20090506
  Serious: Yes (Death, Hospitalization, Other)
  Sender: FDA-Public Use
  Company Number: 2008SP001442

PATIENT
  Age: 57 Year
  Sex: Female
  Weight: 61 kg

DRUGS (3)
  1. TEMODAL [Suspect]
     Indication: COLORECTAL CANCER METASTATIC
     Dosage: 255 MG, QOW;
     Dates: end: 20080106
  2. TEMODAL [Suspect]
     Indication: COLORECTAL CANCER METASTATIC
     Dosage: 255 MG, QOW;
     Dates: start: 20071109, end: 20080110
  3. TEMODAL [Suspect]
     Indication: COLORECTAL CANCER METASTATIC
     Dosage: 255 MG, QOW;
     Dates: end: 20080118

REACTIONS (10)
  - ANAEMIA [None]
  - BLOOD CULTURE POSITIVE [None]
  - ESCHERICHIA INFECTION [None]
  - LYMPHOCYTE COUNT DECREASED [None]
  - LYMPHOCYTE PERCENTAGE INCREASED [None]
  - NEUTROPENIA [None]
  - RECTAL HAEMORRHAGE [None]
  - RED BLOOD CELL COUNT DECREASED [None]
  - THROMBOCYTOPENIA [None]
  - WHITE BLOOD CELL COUNT DECREASED [None]
